FAERS Safety Report 11251229 (Version 8)
Quarter: 2017Q4

REPORT INFORMATION
  Report Type: Report from Study
  Country: CH (occurrence: CH)
  Receive Date: 20150708
  Receipt Date: 20171117
  Transmission Date: 20180320
  Serious: Yes (Death, Hospitalization, Other)
  Sender: FDA-Public Use
  Company Number: CH-INCYTE CORPORATION-2015IN003068

PATIENT

DRUGS (27)
  1. NATRIUMPICOSULFAT [Concomitant]
     Indication: CONSTIPATION
     Dosage: 20 GTT, UNK
     Route: 065
     Dates: start: 20131022
  2. DEXAMETASON [Concomitant]
     Active Substance: DEXAMETHASONE
     Dosage: 10 MG, UNK
  3. PARACETAMOL [Concomitant]
     Active Substance: ACETAMINOPHEN
     Indication: PYREXIA
     Dosage: 500 MG, UNK
     Route: 065
  4. MORPHINE [Concomitant]
     Active Substance: MORPHINE
     Indication: ANALGESIC THERAPY
     Dosage: 2 DF, UNK
     Route: 065
     Dates: start: 20131022
  5. CLAMOXYL                                /NET/ [Concomitant]
     Active Substance: AMOXICILLIN\CLAVULANIC ACID
     Indication: PRODUCT USED FOR UNKNOWN INDICATION
     Route: 065
  6. TORASEMID [Concomitant]
     Active Substance: TORSEMIDE
     Indication: HYPERTENSION
  7. ROCEPHIN [Concomitant]
     Active Substance: CEFTRIAXONE SODIUM
     Indication: PRODUCT USED FOR UNKNOWN INDICATION
     Route: 065
  8. PROPANOLOL [Concomitant]
     Active Substance: PROPRANOLOL HYDROCHLORIDE
     Indication: VARICES OESOPHAGEAL
     Dosage: 1 DF, UNK
     Route: 065
     Dates: start: 20150407
  9. ACICLOVIR [Concomitant]
     Active Substance: ACYCLOVIR
     Route: 065
  10. JAKAVI [Suspect]
     Active Substance: RUXOLITINIB
     Indication: MYELOFIBROSIS
     Dosage: 20 MG, BID
     Route: 065
  11. JAKAVI [Suspect]
     Active Substance: RUXOLITINIB
     Dosage: 15 MG, BID
     Route: 048
     Dates: start: 20140610
  12. PANTOPRAZOL [Concomitant]
     Active Substance: PANTOPRAZOLE SODIUM
     Indication: GASTROOESOPHAGEAL REFLUX PROPHYLAXIS
     Dosage: 1 DF, UNK
     Route: 065
     Dates: start: 20140225
  13. DEXAMETASON [Concomitant]
     Active Substance: DEXAMETHASONE
     Indication: PRODUCT USED FOR UNKNOWN INDICATION
     Dosage: UNK
     Route: 065
  14. DEXAMETASON [Concomitant]
     Active Substance: DEXAMETHASONE
     Dosage: 10 MG, UNK
  15. LITALIR [Concomitant]
     Active Substance: HYDROXYUREA
     Indication: PRODUCT USED FOR UNKNOWN INDICATION
     Dosage: UNK
     Route: 065
     Dates: start: 201402
  16. JAKAVI [Suspect]
     Active Substance: RUXOLITINIB
     Dosage: UNK
     Route: 065
     Dates: start: 20130702, end: 201402
  17. JAKAVI [Suspect]
     Active Substance: RUXOLITINIB
     Dosage: 20 MG, BID
     Route: 065
  18. SALMETEROL/FLUTICASONPROPIONAAT [Concomitant]
     Active Substance: SALMETEROL
     Indication: CHRONIC OBSTRUCTIVE PULMONARY DISEASE
     Dosage: 2 DF, UNK
     Route: 065
     Dates: start: 20141017
  19. PARACETAMOL [Concomitant]
     Active Substance: ACETAMINOPHEN
     Dosage: 4 DF, UNK
     Route: 065
     Dates: start: 20130604
  20. PARACETAMOL [Concomitant]
     Active Substance: ACETAMINOPHEN
     Indication: PRODUCT USED FOR UNKNOWN INDICATION
     Dosage: 500 MG, UNK
     Route: 065
  21. PROPANOLOL [Concomitant]
     Active Substance: PROPRANOLOL HYDROCHLORIDE
     Indication: PRODUCT USED FOR UNKNOWN INDICATION
  22. TORASEMID [Concomitant]
     Active Substance: TORSEMIDE
     Indication: HYPERTONIA
     Dosage: 1 DF, UNK
     Route: 065
     Dates: start: 20140715
  23. NATRIUMPICOSULFAT [Concomitant]
     Indication: PRODUCT USED FOR UNKNOWN INDICATION
  24. DEXAMETASON [Concomitant]
     Active Substance: DEXAMETHASONE
     Dosage: 10 MG, UNK
  25. ACICLOVIR [Concomitant]
     Active Substance: ACYCLOVIR
     Indication: PRODUCT USED FOR UNKNOWN INDICATION
     Route: 065
  26. JAKAVI [Suspect]
     Active Substance: RUXOLITINIB
     Dosage: UNK
     Route: 065
     Dates: start: 201408, end: 20150528
  27. PARACETAMOL [Concomitant]
     Active Substance: ACETAMINOPHEN
     Indication: ANALGESIC THERAPY
     Dosage: 500 MG, UNK
     Route: 065

REACTIONS (25)
  - Gastric varices [Unknown]
  - Pneumonia [Unknown]
  - Lactic acidosis [Unknown]
  - Hepatosplenomegaly [Unknown]
  - Myoclonus [Unknown]
  - Liver abscess [Unknown]
  - Barrett^s oesophagus [Unknown]
  - Portal hypertension [Unknown]
  - Thrombosis [Unknown]
  - Bone pain [Unknown]
  - Coagulopathy [Unknown]
  - Portal hypertensive gastropathy [Unknown]
  - Fatigue [Unknown]
  - Pneumococcal sepsis [Fatal]
  - Oesophageal varices haemorrhage [Not Recovered/Not Resolved]
  - Post procedural discharge [Unknown]
  - Blood glucose decreased [Unknown]
  - Meningitis pneumococcal [Unknown]
  - Ascites [Unknown]
  - Gastrointestinal haemorrhage [Unknown]
  - Encephalitis [Unknown]
  - Portal vein thrombosis [Unknown]
  - Varices oesophageal [Unknown]
  - Pleocytosis [Unknown]
  - Mouth haemorrhage [Recovered/Resolved]

NARRATIVE: CASE EVENT DATE: 20140712
